FAERS Safety Report 12882030 (Version 1)
Quarter: 2016Q4

REPORT INFORMATION
  Report Type: Report from Study
  Country: CA (occurrence: CA)
  Receive Date: 20161025
  Receipt Date: 20161025
  Transmission Date: 20170207
  Serious: Yes (Hospitalization)
  Sender: FDA-Public Use
  Company Number: CA-JNJFOC-20161020294

PATIENT
  Age: 52 Year
  Sex: Female
  Weight: 70.6 kg

DRUGS (1)
  1. SIMPONI [Suspect]
     Active Substance: GOLIMUMAB
     Indication: ANKYLOSING SPONDYLITIS
     Route: 042
     Dates: start: 20160315

REACTIONS (4)
  - Product use issue [Unknown]
  - Herpes zoster [Unknown]
  - Off label use [Unknown]
  - Sialoadenitis [Unknown]

NARRATIVE: CASE EVENT DATE: 20160315
